FAERS Safety Report 7434204-0 (Version None)
Quarter: 2011Q2

REPORT INFORMATION
  Report Type: 
  Country: None (occurrence: None)
  Receive Date: 20110425
  Receipt Date: 20110330
  Transmission Date: 20111010
  Serious: Yes (Other)
  Sender: FDA-Public Use
  Company Number: US-BAYER-200934799NA

PATIENT
  Age: 67 Year
  Sex: Male
  Weight: 82.54 kg

DRUGS (14)
  1. VANCOMYCIN [Concomitant]
     Dosage: 1 G, UNK
     Route: 042
     Dates: start: 20050728
  2. INSULIN [Concomitant]
     Dosage: UNK
     Dates: start: 20050728
  3. TRASYLOL [Suspect]
     Indication: CARDIAC ANEURYSM
     Dosage: 2 MILLION KIU FOLLOWED BY 1/2 MILLION KIU/HR
     Route: 042
     Dates: start: 20050728, end: 20050728
  4. TRASYLOL [Suspect]
     Indication: CORONARY ARTERY BYPASS
  5. EPINEPHRINE [Concomitant]
     Dosage: UNK
     Route: 042
     Dates: start: 20050728
  6. VISIPAQUE [IODINE,IODIXANOL] [Concomitant]
     Indication: CATHETERISATION CARDIAC
     Dosage: 75 ML, UNK
     Dates: start: 20050727
  7. PLATELETS [Concomitant]
     Dosage: 10 U, UNK
     Dates: start: 20050728
  8. HEPARIN [Concomitant]
     Dosage: UNK
     Route: 042
     Dates: start: 20050728
  9. ANCEF [Concomitant]
     Dosage: 1 G, UNK
     Route: 042
     Dates: start: 20050728
  10. PAPAVERINE [Concomitant]
     Dosage: UNK
     Route: 042
     Dates: start: 20050728
  11. ZANTAC [Concomitant]
     Dosage: 50 MG, UNK
     Route: 042
     Dates: start: 20050728
  12. TRASYLOL [Suspect]
     Indication: MITRAL VALVE REPAIR
  13. PROTAMINE SULFATE [Concomitant]
     Dosage: UNK
     Route: 042
     Dates: start: 20050728
  14. LASIX [Concomitant]
     Dosage: 20 MG, UNK
     Route: 042
     Dates: start: 20050728

REACTIONS (10)
  - ANXIETY [None]
  - RENAL FAILURE [None]
  - MULTI-ORGAN FAILURE [None]
  - NERVOUSNESS [None]
  - FEAR [None]
  - PAIN [None]
  - EMOTIONAL DISTRESS [None]
  - INJURY [None]
  - RENAL INJURY [None]
  - DEPRESSION [None]
